FAERS Safety Report 14159904 (Version 1)
Quarter: 2017Q4

REPORT INFORMATION
  Report Type: Spontaneous
  Country: GB (occurrence: GB)
  Receive Date: 20171106
  Receipt Date: 20171106
  Transmission Date: 20180321
  Serious: Yes (Disabling)
  Sender: FDA-Public Use
  Company Number: GB-SUN PHARMACEUTICAL INDUSTRIES LTD-2017RR-153981

PATIENT

DRUGS (2)
  1. NAPROXEN. [Concomitant]
     Active Substance: NAPROXEN
     Indication: PRODUCT USED FOR UNKNOWN INDICATION
     Dosage: TWICE A DAY.
     Route: 065
     Dates: start: 20171016
  2. CODEINE TABLETS [Suspect]
     Active Substance: CODEINE
     Indication: BACK PAIN
     Dosage: UNK
     Route: 065
     Dates: start: 20171016

REACTIONS (4)
  - Swelling face [Unknown]
  - Vomiting [Unknown]
  - Rash [Recovered/Resolved]
  - Drug hypersensitivity [Unknown]

NARRATIVE: CASE EVENT DATE: 20171016
